FAERS Safety Report 8047165-0 (Version None)
Quarter: 2012Q1

REPORT INFORMATION
  Report Type: 
  Country: None (occurrence: None)
  Receive Date: 20120116
  Receipt Date: 20120109
  Transmission Date: 20120608
  Serious: Yes (Death, Hospitalization)
  Sender: FDA-Public Use
  Company Number: LB-SANOFI-AVENTIS-2011SA080733

PATIENT
  Age: 82 Year
  Sex: Male

DRUGS (3)
  1. JEVTANA KIT [Suspect]
     Route: 042
     Dates: start: 20111101, end: 20111101
  2. JEVTANA KIT [Suspect]
     Route: 042
     Dates: start: 20110901, end: 20110901
  3. RAMIPRIL [Concomitant]
     Indication: HYPERTENSION
     Route: 048

REACTIONS (6)
  - GENERAL PHYSICAL HEALTH DETERIORATION [None]
  - HAEMATURIA [None]
  - THROMBOCYTOPENIA [None]
  - RENAL FAILURE [None]
  - ANURIA [None]
  - DECREASED APPETITE [None]
